FAERS Safety Report 21131813 (Version 2)
Quarter: 2022Q3

REPORT INFORMATION
  Report Type: Spontaneous
  Country: US (occurrence: US)
  Receive Date: 20220726
  Receipt Date: 20220802
  Transmission Date: 20221026
  Serious: Yes (Other)
  Sender: FDA-Public Use
  Company Number: US-009507513-2207USA006068

PATIENT
  Age: 61 Year
  Sex: Female

DRUGS (2)
  1. KEYTRUDA [Suspect]
     Active Substance: PEMBROLIZUMAB
     Dosage: UNK
  2. INLYTA [Suspect]
     Active Substance: AXITINIB
     Dosage: TAKE 2 (5MG) TABLETS BY MOUTH DAILY
     Route: 048
     Dates: start: 20220519

REACTIONS (11)
  - Thrombosis [Unknown]
  - Movement disorder [Recovering/Resolving]
  - Scratch [Unknown]
  - Tenderness [Not Recovered/Not Resolved]
  - Illness [Unknown]
  - Nasopharyngitis [Recovering/Resolving]
  - Poor quality sleep [Recovering/Resolving]
  - Pain [Recovering/Resolving]
  - Weight decreased [Unknown]
  - Pain in extremity [Not Recovered/Not Resolved]
  - Nausea [Unknown]

NARRATIVE: CASE EVENT DATE: 20200901
